FAERS Safety Report 8542414-4 (Version None)
Quarter: 2012Q3

REPORT INFORMATION
  Report Type: 
  Country: None (occurrence: None)
  Receive Date: 20120726
  Receipt Date: 20120723
  Transmission Date: 20120928
  Serious: Yes (Other)
  Sender: FDA-Public Use
  Company Number: US-PFIZER INC-2012178194

PATIENT
  Sex: Male
  Weight: 104 kg

DRUGS (6)
  1. LYRICA [Suspect]
     Dosage: 2 CAPSULES OF 75MG IN THE MORNING AND 2 CAPSULES OF 75MG IN THE EVENING
     Route: 048
     Dates: start: 20120101
  2. HYDROCODONE [Suspect]
     Indication: ARTHRALGIA
     Dosage: 7.5/325MG TWO TIMES A DAY
  3. HYDROCODONE [Suspect]
     Indication: PAIN IN EXTREMITY
     Dosage: UNK
  4. LYRICA [Suspect]
     Indication: ARTHRALGIA
     Dosage: 300 MG, 2X/DAY
     Route: 048
  5. NAPROXEN [Concomitant]
     Indication: ARTHRITIS
     Dosage: 500 MG, 2X/DAY
  6. LYRICA [Suspect]
     Indication: PAIN IN EXTREMITY
     Dosage: 75 MG, 3X/DAY
     Route: 048

REACTIONS (2)
  - PAIN IN EXTREMITY [None]
  - IMPAIRED WORK ABILITY [None]
